FAERS Safety Report 16323269 (Version 1)
Quarter: 2019Q2

REPORT INFORMATION
  Report Type: Spontaneous
  Country: US (occurrence: US)
  Receive Date: 20190517
  Receipt Date: 20190517
  Transmission Date: 20190711
  Serious: No
  Sender: FDA-Public Use
  Company Number: US-ASTRAZENECA-2019SE61622

PATIENT
  Age: 47 Year
  Sex: Female

DRUGS (1)
  1. FASENRA [Suspect]
     Active Substance: BENRALIZUMAB
     Indication: ASTHMA
     Dosage: 1 DOSE EVERY 4 WEEKS FOR 3 DOSES AND THEN 1 DOSE EVERY 8 WEEKS
     Route: 058

REACTIONS (3)
  - Wheezing [Not Recovered/Not Resolved]
  - Adverse event [Unknown]
  - Cough [Not Recovered/Not Resolved]
